FAERS Safety Report 7907382-4 (Version None)
Quarter: 2011Q4

REPORT INFORMATION
  Report Type: 
  Country: None (occurrence: None)
  Receive Date: 20111109
  Receipt Date: 20111109
  Transmission Date: 20120403
  Serious: No
  Sender: FDA-Public Use
  Company Number: None

PATIENT
  Sex: Female

DRUGS (1)
  1. KERANIQUE KIT-SHAMPOO, CONDITIONER, SERUM, SPRAY CONTAINES 2% MINOXIDI [Suspect]

REACTIONS (1)
  - ALOPECIA [None]
